FAERS Safety Report 8641133 (Version 4)
Quarter: 2015Q2

REPORT INFORMATION
  Report Type: Spontaneous
  Country: US (occurrence: US)
  Receive Date: 20120628
  Receipt Date: 20150605
  Transmission Date: 20150821
  Serious: Yes (Life-Threatening, Congenital Anomaly, Other)
  Sender: FDA-Public Use
  Company Number: US-PFIZER INC-2012152244

PATIENT
  Sex: Male
  Weight: 2 kg

DRUGS (19)
  1. SUDAFED [Concomitant]
     Active Substance: PSEUDOEPHEDRINE HYDROCHLORIDE
     Dosage: UNK
     Route: 064
  2. LEVOTHYROX [Concomitant]
     Active Substance: LEVOTHYROXINE
     Dosage: 175 UG, UNK
     Route: 064
     Dates: start: 20051013
  3. BETAMETHASONE [Concomitant]
     Active Substance: BETAMETHASONE
     Dosage: UNK
     Route: 064
     Dates: start: 20060226, end: 20060227
  4. MAGNESIUM SULFATE. [Concomitant]
     Active Substance: MAGNESIUM SULFATE
     Indication: TOCOLYSIS
     Dosage: 2 G, DAILY
     Route: 064
     Dates: start: 20060226
  5. PENICILLIN G [Concomitant]
     Active Substance: PENICILLIN G
     Dosage: UNK
     Route: 064
     Dates: start: 20060226, end: 20060228
  6. CELEXA [Concomitant]
     Active Substance: CITALOPRAM HYDROBROMIDE
     Dosage: 20 MG, UNK
     Route: 064
     Dates: start: 20060227
  7. PAROXETINE [Concomitant]
     Active Substance: PAROXETINE\PAROXETINE HYDROCHLORIDE
     Dosage: 10 MG, UNK
     Route: 064
     Dates: start: 20050708
  8. ZOLOFT [Suspect]
     Active Substance: SERTRALINE HYDROCHLORIDE
     Indication: ANXIETY
     Dosage: 25 MG, DAILY FOR ONE WEEK
     Route: 064
     Dates: start: 20050928, end: 20051004
  9. CITALOPRAM [Concomitant]
     Active Substance: CITALOPRAM HYDROBROMIDE
     Dosage: 20 MG, UNK
     Route: 064
     Dates: start: 20051114
  10. INDOMETHACIN. [Concomitant]
     Active Substance: INDOMETHACIN
     Indication: TOCOLYSIS
     Dosage: UNK
     Route: 064
     Dates: start: 20060226
  11. CELEXA [Concomitant]
     Active Substance: CITALOPRAM HYDROBROMIDE
     Dosage: 40 MG, DAILY
     Route: 064
  12. PAXIL [Concomitant]
     Active Substance: PAROXETINE HYDROCHLORIDE
     Indication: ANXIETY
     Dosage: 25 MG, UNK
     Route: 064
     Dates: start: 20041220, end: 20050928
  13. EXCEDRIN [Concomitant]
     Active Substance: ACETAMINOPHEN\ASPIRIN\CAFFEINE
     Dosage: UNK
     Route: 064
  14. PRENATAL VITAMINS [Concomitant]
     Active Substance: VITAMINS
     Dosage: UNK
     Route: 064
  15. INDOCIN [Concomitant]
     Active Substance: INDOMETHACIN\INDOMETHACIN SODIUM
     Dosage: 25 MG, 1X/DAY
     Route: 064
     Dates: start: 20060308
  16. ZOLOFT [Suspect]
     Active Substance: SERTRALINE HYDROCHLORIDE
     Dosage: 50 MG, 1X/DAY (25MG TWO TABLETS)
     Route: 064
     Dates: start: 20051019
  17. SYNTHROID [Concomitant]
     Active Substance: LEVOTHYROXINE SODIUM
     Dosage: 175 UG, UNK
     Route: 064
     Dates: start: 20041022
  18. METRONIDAZOLE. [Concomitant]
     Active Substance: METRONIDAZOLE
     Dosage: 500 MG, UNK
     Route: 064
     Dates: start: 20051220
  19. LEVOTHYROXINE [Concomitant]
     Active Substance: LEVOTHYROXINE
     Dosage: 175 ?G, UNK
     Route: 064
     Dates: start: 20060227

REACTIONS (11)
  - Laryngomalacia [Unknown]
  - Congenital inguinal hernia [Unknown]
  - Maternal exposure timing unspecified [Unknown]
  - Persistent foetal circulation [Unknown]
  - Heart disease congenital [Unknown]
  - Lung disorder [Unknown]
  - Premature baby [Unknown]
  - Exomphalos [Unknown]
  - Atrial septal defect [Unknown]
  - Tracheomalacia [Unknown]
  - Bronchomalacia [Unknown]

NARRATIVE: CASE EVENT DATE: 20060310
